FAERS Safety Report 6083388-8 (Version None)
Quarter: 2009Q1

REPORT INFORMATION
  Report Type: 
  Country: None (occurrence: None)
  Receive Date: 20090219
  Receipt Date: 20090212
  Transmission Date: 20090719
  Serious: Yes (Hospitalization)
  Sender: FDA-Public Use
  Company Number: US-WYE-H08189009

PATIENT
  Sex: Female

DRUGS (1)
  1. ZOSYN [Suspect]
     Dosage: UNKNOWN
     Route: 042

REACTIONS (1)
  - HAEMOLYSIS [None]
